FAERS Safety Report 5024666-0 (Version None)
Quarter: 2006Q2

REPORT INFORMATION
  Report Type: 
  Country: None (occurrence: None)
  Receive Date: 20060613
  Receipt Date: 20060212
  Transmission Date: 20061013
  Serious: Yes (Other)
  Sender: FDA-Public Use
  Company Number: US-ROCHE-436384

PATIENT
  Age: 57 Year
  Sex: Male

DRUGS (5)
  1. PEGASYS [Suspect]
     Route: 058
     Dates: start: 20050509, end: 20060212
  2. COPEGUS [Suspect]
     Dosage: 2 TABLETS AT BREAKFAST, 3 TABLETS AT SUPPER.
     Route: 048
     Dates: start: 20050509, end: 20060212
  3. N,N-DIMETHYLGLYCINE [Concomitant]
  4. ACETYLCYSTEINE [Concomitant]
  5. GLUTATHIONE [Concomitant]
     Dosage: AT SUPPER. EVENTUALLY, BECAUSE THE PATIENT THOUGHT IT WAS GOING TO UPSET THE STOMACH.

REACTIONS (23)
  - ANOREXIA [None]
  - ARTHRALGIA [None]
  - CELLULITIS [None]
  - COUGH [None]
  - DIARRHOEA [None]
  - DRY SKIN [None]
  - DYSPEPSIA [None]
  - ELECTROLYTE DEPLETION [None]
  - FATIGUE [None]
  - HAEMOLYTIC ANAEMIA [None]
  - IMMUNE SYSTEM DISORDER [None]
  - INFLUENZA LIKE ILLNESS [None]
  - INSOMNIA [None]
  - NASOPHARYNGITIS [None]
  - NAUSEA [None]
  - NEUROPATHY [None]
  - OEDEMA [None]
  - OEDEMA PERIPHERAL [None]
  - PITTING OEDEMA [None]
  - PRURITUS [None]
  - PULMONARY OEDEMA [None]
  - RASH [None]
  - VISUAL DISTURBANCE [None]
